FAERS Safety Report 10357164 (Version 1)
Quarter: 2014Q3

REPORT INFORMATION
  Report Type: Spontaneous
  Country: FI (occurrence: FI)
  Receive Date: 20140801
  Receipt Date: 20140801
  Transmission Date: 20150326
  Serious: Yes (Other)
  Sender: FDA-Public Use
  Company Number: FI-WATSON-2014-16275

PATIENT
  Age: 39 Year
  Sex: Male

DRUGS (3)
  1. FUNGORIN [Concomitant]
     Indication: ONYCHOMYCOSIS
     Dosage: 250 MG, DAILY
     Route: 046
     Dates: start: 20140415
  2. STELLA (ZOLPIDEM TARTRATE) [Suspect]
     Active Substance: ZOLPIDEM TARTRATE
     Dosage: 5 MG, UNK
     Route: 048
  3. STELLA (ZOLPIDEM TARTRATE) [Suspect]
     Active Substance: ZOLPIDEM TARTRATE
     Indication: INSOMNIA
     Dosage: 15 MG, TOTAL
     Route: 048
     Dates: start: 20140511, end: 20140511

REACTIONS (5)
  - Confusional state [Recovered/Resolved]
  - Fear [Recovered/Resolved]
  - Restlessness [Recovered/Resolved]
  - Hallucination, auditory [Recovered/Resolved]
  - Drug ineffective [Recovered/Resolved]

NARRATIVE: CASE EVENT DATE: 20140511
